FAERS Safety Report 11335418 (Version 1)
Quarter: 2015Q3

REPORT INFORMATION
  Report Type: Report from Study
  Country: US (occurrence: US)
  Receive Date: 20150804
  Receipt Date: 20150804
  Transmission Date: 20151125
  Serious: Yes (Other)
  Sender: FDA-Public Use
  Company Number: PHEH2014US002461

PATIENT
  Age: 61 Year
  Sex: Female

DRUGS (1)
  1. SANDOSTATIN LAR DEPOT [Suspect]
     Active Substance: OCTREOTIDE ACETATE
     Indication: CARCINOID SYNDROME
     Dosage: 10 MG, QMO
     Route: 030
     Dates: start: 20131009

REACTIONS (8)
  - Wrong technique in product usage process [Unknown]
  - Malignant neoplasm progression [Unknown]
  - Neoplasm [Unknown]
  - Incorrect route of drug administration [Unknown]
  - Injection site pain [Recovered/Resolved]
  - Drug effect decreased [Recovered/Resolved]
  - Carcinoid syndrome [Unknown]
  - Injection site bruising [Recovered/Resolved]

NARRATIVE: CASE EVENT DATE: 20131231
